FAERS Safety Report 18299246 (Version 2)
Quarter: 2020Q4

REPORT INFORMATION
  Report Type: Spontaneous
  Country: US (occurrence: US)
  Receive Date: 20200922
  Receipt Date: 20201005
  Transmission Date: 20210113
  Serious: Yes (Death, Hospitalization, Other)
  Sender: FDA-Public Use
  Company Number: US-GILEAD-2020-0495913

PATIENT
  Age: 70 Year
  Sex: Male
  Weight: 114.01 kg

DRUGS (22)
  1. REMDESIVIR. [Suspect]
     Active Substance: REMDESIVIR
     Indication: COVID-19
     Dosage: 200 MG, ONCE
     Route: 042
     Dates: start: 20200831, end: 20200831
  2. PLASMA [Concomitant]
     Active Substance: HUMAN PLASMA
     Dosage: 1 UNIT
     Route: 042
  3. PROPOFOL. [Concomitant]
     Active Substance: PROPOFOL
     Indication: SEDATION
  4. CEFTRIAXONE. [Concomitant]
     Active Substance: CEFTRIAXONE
     Indication: INFECTION
     Dosage: 2 G
     Dates: start: 20200908, end: 20200913
  5. SENNA ACUTIFOLIA [Concomitant]
     Indication: CONSTIPATION
     Dosage: 176MG/ 5ML
     Route: 048
     Dates: start: 20200910, end: 20200913
  6. ENOXAPARIN [Concomitant]
     Active Substance: ENOXAPARIN
     Dosage: 60 MG, BID
     Route: 058
     Dates: start: 20200831
  7. HEPARIN [Concomitant]
     Active Substance: HEPARIN SODIUM
     Indication: ANTICOAGULANT THERAPY
     Dosage: 1.79 U/KG/HR
     Route: 042
     Dates: start: 20200908, end: 20200913
  8. ATORVASTATIN [Concomitant]
     Active Substance: ATORVASTATIN
     Indication: CORONARY ARTERY DISEASE
     Dosage: 40 MG
     Route: 048
     Dates: start: 20200831, end: 20200913
  9. PANTOPRAZOLE [Concomitant]
     Active Substance: PANTOPRAZOLE
     Dosage: 40 MG, QD
     Dates: start: 20200903, end: 20200913
  10. APIXABAN [Concomitant]
     Active Substance: APIXABAN
  11. REMDESIVIR. [Suspect]
     Active Substance: REMDESIVIR
     Dosage: 100 MG, QD
     Route: 042
     Dates: start: 20200901, end: 20200909
  12. CALCIUM GLUCONATE. [Concomitant]
     Active Substance: CALCIUM GLUCONATE
     Indication: HYPERKALAEMIA
     Dosage: 2 G
     Route: 042
     Dates: start: 20200912, end: 20200912
  13. ANGIOTENSIN II [Concomitant]
     Active Substance: ANGIOTENSIN II
     Indication: HYPOTENSION
     Dosage: 40 NG/KG/MIN
     Route: 042
     Dates: start: 20200912, end: 20200913
  14. INSULIN [Concomitant]
     Active Substance: INSULIN NOS
     Dosage: 15 UNITS
     Route: 058
     Dates: start: 20200831, end: 20200913
  15. SEVELAMER [Concomitant]
     Active Substance: SEVELAMER
     Dosage: 1.6 G
     Dates: start: 20200910, end: 20200913
  16. POLYETHYLENE GLYCOL [MACROGOL] [Concomitant]
     Active Substance: POLYETHYLENE GLYCOLS
     Dosage: 17 G
     Route: 048
     Dates: start: 20200908, end: 20200913
  17. VASOPRESSIN. [Concomitant]
     Active Substance: VASOPRESSIN
     Indication: HYPOTENSION
     Dosage: 0.04 U
     Route: 042
     Dates: start: 20200913, end: 20200913
  18. DEXAMETHASONE. [Concomitant]
     Active Substance: DEXAMETHASONE
     Dosage: 6 MG, QD
     Route: 042
     Dates: start: 20200831
  19. HYDROMORPHONE [Concomitant]
     Active Substance: HYDROMORPHONE
     Indication: PAIN
     Dosage: 0.6 MG/HR
     Route: 042
     Dates: start: 20200908, end: 20200913
  20. HYDROMORPHONE [Concomitant]
     Active Substance: HYDROMORPHONE
     Indication: SEDATION
  21. PROPOFOL. [Concomitant]
     Active Substance: PROPOFOL
     Indication: PAIN
     Dosage: 5MCG/KG/MIN
     Route: 042
     Dates: start: 20200908, end: 20200913
  22. NOREPINEPHRINE. [Concomitant]
     Active Substance: NOREPINEPHRINE
     Indication: HYPOTENSION
     Dosage: 50MCG/MIN
     Route: 042
     Dates: start: 20200913, end: 20200913

REACTIONS (4)
  - Acute kidney injury [Fatal]
  - Respiratory distress [Fatal]
  - Acute hepatic failure [Fatal]
  - Multi-organ disorder [Fatal]

NARRATIVE: CASE EVENT DATE: 202009
